FAERS Safety Report 5958451-X (Version None)
Quarter: 2008Q4

REPORT INFORMATION
  Report Type: 
  Country: None (occurrence: None)
  Receive Date: 20081119
  Receipt Date: 20081014
  Transmission Date: 20090506
  Serious: Yes (Death, Life-Threatening, Hospitalization, Other)
  Sender: FDA-Public Use
  Company Number: IE-ELI_LILLY_AND_COMPANY-IE200608002016

PATIENT
  Sex: Female

DRUGS (7)
  1. CYMBALTA [Suspect]
     Indication: DEPRESSION
     Dosage: 60 MG, 2/D
     Route: 048
     Dates: start: 20060424, end: 20060507
  2. CYMBALTA [Interacting]
     Dosage: 30 MG, UNKNOWN
     Route: 065
     Dates: start: 20060508, end: 20060101
  3. LARGACTIL [Concomitant]
     Dosage: UNK, UNKNOWN
     Route: 065
  4. LIBRIUM [Concomitant]
     Dosage: 10 MG, 3/D
     Route: 065
  5. TRYPTIZOL [Concomitant]
     Dosage: 50 MG, UNKNOWN
     Route: 065
  6. CLONAZINE [Concomitant]
     Dosage: 25 MG AT 6:00PM + 50 MG AT NIGHT, OTHER
     Route: 065
  7. ZOLPIDEM TARTRATE [Concomitant]
     Dosage: 20 MG, EACH EVENING
     Route: 065

REACTIONS (6)
  - BRONCHOPNEUMONIA [None]
  - CEREBROVASCULAR ACCIDENT [None]
  - DRUG INTERACTION [None]
  - ENCEPHALOPATHY [None]
  - HEPATIC STEATOSIS [None]
  - SEROTONIN SYNDROME [None]
